FAERS Safety Report 10881140 (Version 1)
Quarter: 2015Q1

REPORT INFORMATION
  Report Type: Spontaneous
  Country: US (occurrence: None)
  Receive Date: 20150225
  Receipt Date: 20150225
  Transmission Date: 20150721
  Serious: Yes (Hospitalization)
  Sender: FDA-Public Use
  Company Number: None

PATIENT
  Age: 58 Year
  Sex: Male
  Weight: 74.8 kg

DRUGS (13)
  1. LENALIDOMIDE 5 MG [Suspect]
     Active Substance: LENALIDOMIDE
     Indication: PLASMA CELL MYELOMA
     Dosage: 20 MG, DAYS 1-14, ORAL
     Route: 048
     Dates: start: 20150105, end: 20150110
  2. OXYCODONE [Concomitant]
     Active Substance: OXYCODONE
  3. ENOXAPARIN [Concomitant]
     Active Substance: ENOXAPARIN
  4. ACYCLOVIR. [Concomitant]
     Active Substance: ACYCLOVIR
  5. AUGMENTIN [Concomitant]
     Active Substance: AMOXICILLIN\CLAVULANATE POTASSIUM
  6. VELCADE [Suspect]
     Active Substance: BORTEZOMIB
     Indication: PLASMA CELL MYELOMA
     Dosage: 1.3 MG/M2, DAYS 1, 4, 8, 11, INTRAVNEOUS
     Route: 042
     Dates: start: 20150105, end: 20150109
  7. ATORVASTATIN [Concomitant]
     Active Substance: ATORVASTATIN
  8. OMEPRAZOLE. [Concomitant]
     Active Substance: OMEPRAZOLE
  9. REMERON [Concomitant]
     Active Substance: MIRTAZAPINE
  10. PROCHLOROPERZINE [Concomitant]
  11. LORAZEPAM. [Concomitant]
     Active Substance: LORAZEPAM
  12. DIPHENHYDRAMINE [Concomitant]
     Active Substance: DIPHENHYDRAMINE
  13. DEXAMETHASONE. [Concomitant]
     Active Substance: DEXAMETHASONE

REACTIONS (2)
  - Lung infection [None]
  - Pleural effusion [None]

NARRATIVE: CASE EVENT DATE: 20150209
